FAERS Safety Report 14025707 (Version 2)
Quarter: 2017Q4

REPORT INFORMATION
  Report Type: Spontaneous
  Country: FR (occurrence: FR)
  Receive Date: 20170929
  Receipt Date: 20171208
  Transmission Date: 20180321
  Serious: Yes (Hospitalization)
  Sender: FDA-Public Use
  Company Number: FR-ELI_LILLY_AND_COMPANY-FR201709006211

PATIENT
  Age: 62 Year
  Sex: Male

DRUGS (9)
  1. TAHOR [Concomitant]
     Active Substance: ATORVASTATIN CALCIUM
     Dosage: UNK UNK, UNKNOWN
     Route: 065
  2. COVERSYL                           /00790702/ [Concomitant]
     Active Substance: PERINDOPRIL
     Dosage: UNK UNK, UNKNOWN
     Route: 065
  3. KARDEGIC [Concomitant]
     Active Substance: ASPIRIN DL-LYSINE
     Dosage: UNK UNK, UNKNOWN
     Route: 065
  4. ZYPREXA [Suspect]
     Active Substance: OLANZAPINE
     Indication: SCHIZOPHRENIA
     Dosage: 1 DF, DAILY
     Route: 048
  5. SERESTA [Interacting]
     Active Substance: OXAZEPAM
     Indication: ANXIETY
     Dosage: 3 DF, DAILY
     Route: 048
  6. SERESTA [Interacting]
     Active Substance: OXAZEPAM
     Indication: ANXIETY
     Dosage: 1 DF, DAILY
     Route: 048
  7. NOCTAMIDE [Interacting]
     Active Substance: LORMETAZEPAM
     Indication: INSOMNIA
     Dosage: 1 DF, DAILY
     Route: 048
  8. DEROXAT [Interacting]
     Active Substance: PAROXETINE HYDROCHLORIDE
     Indication: DEPRESSION
     Dosage: 1 DF, DAILY
     Route: 048
  9. DETENSIEL                          /00802601/ [Concomitant]
     Active Substance: BISOPROLOL FUMARATE
     Dosage: UNK UNK, UNKNOWN
     Route: 065

REACTIONS (8)
  - Visual impairment [Recovered/Resolved]
  - Disorientation [Recovered/Resolved]
  - Psychomotor retardation [Recovered/Resolved]
  - Drug interaction [Unknown]
  - Depressive symptom [Not Recovered/Not Resolved]
  - Dizziness [Recovered/Resolved]
  - Overdose [Unknown]
  - Malaise [Recovered/Resolved]

NARRATIVE: CASE EVENT DATE: 20120709
